FAERS Safety Report 8317392-3 (Version None)
Quarter: 2012Q2

REPORT INFORMATION
  Report Type: 
  Country: None (occurrence: None)
  Receive Date: 20120427
  Receipt Date: 20120417
  Transmission Date: 20120825
  Serious: Yes (Other)
  Sender: FDA-Public Use
  Company Number: US-CELGENEUS-163-21880-12011995

PATIENT
  Sex: Female

DRUGS (22)
  1. B COMPLEX ELX [Concomitant]
     Route: 065
  2. SOLIFENACIN SUCCINATE [Concomitant]
     Dosage: 10 MILLIGRAM
     Route: 048
  3. ASCORBIC ACID [Concomitant]
     Dosage: 500 MILLIGRAM
     Route: 048
  4. REVLIMID [Suspect]
     Indication: MULTIPLE MYELOMA
     Dosage: 15 MILLIGRAM
     Route: 048
     Dates: start: 20111228
  5. ESTRACE [Concomitant]
     Dosage: 1 APP
     Route: 067
  6. VITAMIN E [Concomitant]
     Dosage: 400 IU (INTERNATIONAL UNIT)
     Route: 048
  7. ACYCLOVIR [Concomitant]
     Indication: ANTIBIOTIC PROPHYLAXIS
     Dosage: 400 MILLIGRAM
     Route: 048
  8. CALCIUM-MAGNESIUM-ZINC-D [Concomitant]
     Dosage: 1200MG-500MG-10MG-200IU
     Route: 065
  9. SENNA S [Concomitant]
     Indication: CONSTIPATION
     Dosage: 50-8.6MG
     Route: 048
  10. ATIVAN [Concomitant]
     Indication: NAUSEA
     Dosage: .5 MILLIGRAM
     Route: 048
  11. ATIVAN [Concomitant]
     Indication: VOMITING
  12. D [Concomitant]
     Dosage: 1 TABLET
     Route: 048
  13. DEXAMETHASONE [Concomitant]
     Dosage: 20 MILLIGRAM
     Route: 048
  14. VELCADE [Concomitant]
     Route: 065
  15. ACIDOPHILUS PROBIOTIC BLEND [Concomitant]
     Dosage: 2 CAPSULE
     Route: 048
  16. LEVOXYL [Concomitant]
     Dosage: 25 MICROGRAM
     Route: 048
  17. CITRUCEL [Concomitant]
     Route: 048
  18. MIRTAZAPINE [Concomitant]
     Dosage: 30 MILLIGRAM
     Route: 048
  19. FISH OIL [Concomitant]
     Dosage: 1000 MILLIGRAM
     Route: 048
  20. ACETAMINOPHEN-HYDROCODONE [Concomitant]
     Indication: PAIN
     Dosage: 325-5MG
     Route: 048
  21. DILAUDID [Concomitant]
     Indication: PAIN
     Dosage: 1-2 TABLETS
     Route: 048
  22. LISINOPRIL [Concomitant]
     Dosage: 10 MILLIGRAM
     Route: 048

REACTIONS (1)
  - COLITIS [None]
